FAERS Safety Report 17089721 (Version 3)
Quarter: 2020Q2

REPORT INFORMATION
  Report Type: Report from Study
  Country: US (occurrence: US)
  Receive Date: 20191128
  Receipt Date: 20200530
  Transmission Date: 20200713
  Serious: No
  Sender: FDA-Public Use
  Company Number: NVSC2019US050216

PATIENT
  Sex: Female
  Weight: 6.5 kg

DRUGS (1)
  1. ZOLGENSMA [Suspect]
     Active Substance: ONASEMNOGENE ABEPARVOVEC-XIOI
     Indication: SPINAL MUSCULAR ATROPHY
     Dosage: UNK, ONCE/SINGLE
     Route: 042
     Dates: start: 20191118

REACTIONS (3)
  - Hepatic enzyme increased [Recovered/Resolved]
  - Vomiting [Unknown]
  - Nausea [Recovered/Resolved]
